FAERS Safety Report 11719344 (Version 1)
Quarter: 2015Q4

REPORT INFORMATION
  Report Type: Spontaneous
  Country: US (occurrence: None)
  Receive Date: 20151109
  Receipt Date: 20151109
  Transmission Date: 20160304
  Serious: No
  Sender: FDA-Public Use
  Company Number: None

PATIENT
  Age: 53 Year
  Sex: Male
  Weight: 83.92 kg

DRUGS (1)
  1. DULOXETINE. [Suspect]
     Active Substance: DULOXETINE
     Indication: GENERALISED ANXIETY DISORDER
     Route: 048
     Dates: start: 20150901, end: 20151105

REACTIONS (3)
  - Drug withdrawal syndrome [None]
  - Product formulation issue [None]
  - Product measured potency issue [None]

NARRATIVE: CASE EVENT DATE: 20151106
